FAERS Safety Report 4551247-5 (Version None)
Quarter: 2005Q1

REPORT INFORMATION
  Report Type: 
  Country: None (occurrence: None)
  Receive Date: 20050106
  Receipt Date: 20041221
  Transmission Date: 20050727
  Serious: Yes (Hospitalization)
  Sender: FDA-Public Use
  Company Number: DE_041214939

PATIENT
  Age: 64 Year
  Sex: Female
  Weight: 79.8331 kg

DRUGS (1)
  1. FORTEO [Suspect]
     Indication: OSTEOPOROSIS
     Dosage: 20UG/1 DAY
     Dates: start: 20040220, end: 20040224

REACTIONS (2)
  - COLONIC POLYP [None]
  - GASTROINTESTINAL HAEMORRHAGE [None]
